FAERS Safety Report 12052946 (Version 1)
Quarter: 2016Q1

REPORT INFORMATION
  Report Type: Report from Study
  Country: BR (occurrence: BR)
  Receive Date: 20160209
  Receipt Date: 20160209
  Transmission Date: 20160526
  Serious: Yes (Other)
  Sender: FDA-Public Use
  Company Number: PHHY2016BR016960

PATIENT
  Sex: Male
  Weight: 84 kg

DRUGS (1)
  1. SANDOSTATIN LAR DEPOT [Suspect]
     Active Substance: OCTREOTIDE ACETATE
     Indication: ACROMEGALY
     Dosage: 20 MG, QMO
     Route: 030
     Dates: start: 201403

REACTIONS (5)
  - Pancreatic carcinoma metastatic [Unknown]
  - Femur fracture [Unknown]
  - Neoplasm progression [Unknown]
  - Metastases to lung [Unknown]
  - Neoplasm [Unknown]
